FAERS Safety Report 5918027-7 (Version None)
Quarter: 2008Q4

REPORT INFORMATION
  Report Type: 
  Country: None (occurrence: None)
  Receive Date: 20081014
  Receipt Date: 20081007
  Transmission Date: 20090506
  Serious: Yes (Hospitalization)
  Sender: FDA-Public Use
  Company Number: DE-ABBOTT-08P-062-0474847-00

PATIENT
  Sex: Female
  Weight: 96 kg

DRUGS (2)
  1. HUMIRA [Suspect]
     Indication: PSORIATIC ARTHROPATHY
     Route: 058
     Dates: start: 20080423, end: 20080701
  2. HUMIRA [Suspect]

REACTIONS (7)
  - CHILLS [None]
  - ERYSIPELAS [None]
  - ERYTHEMA [None]
  - HEADACHE [None]
  - NAUSEA [None]
  - OEDEMA PERIPHERAL [None]
  - PYREXIA [None]
